FAERS Safety Report 6153272-X (Version None)
Quarter: 2009Q2

REPORT INFORMATION
  Report Type: 
  Country: None (occurrence: None)
  Receive Date: 20090413
  Receipt Date: 20090406
  Transmission Date: 20091009
  Serious: Yes (Life-Threatening, Hospitalization)
  Sender: FDA-Public Use
  Company Number: ES-AVENTIS-200913555GDDC

PATIENT
  Age: 78 Year
  Sex: Female

DRUGS (6)
  1. DAONIL [Suspect]
     Route: 048
     Dates: start: 20010101, end: 20080616
  2. METFORMIN HCL [Suspect]
     Route: 048
     Dates: start: 20020101, end: 20080616
  3. ALDOCUMAR [Suspect]
     Indication: BLOOD PRESSURE INCREASED
     Dosage: DOSE: UNK
     Route: 048
     Dates: start: 20080613, end: 20080616
  4. DOXAZOSIN MESYLATE [Concomitant]
     Indication: BLOOD PRESSURE INCREASED
     Route: 048
     Dates: start: 20060101
  5. AMLODIPINE [Concomitant]
     Indication: BLOOD PRESSURE INCREASED
     Route: 048
     Dates: start: 20040101
  6. KALPRESS [Concomitant]
     Indication: BLOOD PRESSURE INCREASED
     Route: 048
     Dates: start: 20060101, end: 20080616

REACTIONS (3)
  - DRUG INTERACTION [None]
  - HYPOGLYCAEMIA [None]
  - RENAL FAILURE ACUTE [None]
